FAERS Safety Report 9162741 (Version 1)
Quarter: 2013Q1

REPORT INFORMATION
  Report Type: Spontaneous
  Country: US (occurrence: None)
  Receive Date: 20130207
  Receipt Date: 20130207
  Transmission Date: 20140127
  Serious: Yes (Life-Threatening)
  Sender: FDA-Public Use
  Company Number: NMS-00071

PATIENT
  Age: 46 Year
  Sex: Male

DRUGS (1)
  1. NITROGLYCERIN [Suspect]
     Indication: CHEST PAIN
     Dosage: 0.4 MG WITH A REPEAT DOSE 5 MINUTES LATER, TWICE, SUBLINGUAL

REACTIONS (4)
  - Atrioventricular block complete [None]
  - Ventricular asystole [None]
  - Dizziness [None]
  - Loss of consciousness [None]
